FAERS Safety Report 7781672-0 (Version None)
Quarter: 2011Q3

REPORT INFORMATION
  Report Type: 
  Country: None (occurrence: None)
  Receive Date: 20110927
  Receipt Date: 20110919
  Transmission Date: 20111222
  Serious: Yes (Death, Other)
  Sender: FDA-Public Use
  Company Number: US-PURDUE-USA-2011-0074796

PATIENT
  Age: 26 Year
  Sex: Female

DRUGS (2)
  1. OXYCONTIN [Suspect]
     Indication: OVERDOSE
  2. HEROIN [Suspect]
     Indication: OVERDOSE

REACTIONS (6)
  - BLOOD POTASSIUM DECREASED [None]
  - LIVER FUNCTION TEST ABNORMAL [None]
  - BLOOD CALCIUM DECREASED [None]
  - HAEMATEMESIS [None]
  - MULTIPLE DRUG OVERDOSE [None]
  - INTESTINAL ISCHAEMIA [None]
